FAERS Safety Report 8378363-4 (Version None)
Quarter: 2012Q2

REPORT INFORMATION
  Report Type: 
  Country: None (occurrence: None)
  Receive Date: 20120522
  Receipt Date: 20120514
  Transmission Date: 20120825
  Serious: Yes (Hospitalization, Other)
  Sender: FDA-Public Use
  Company Number: US-ELI_LILLY_AND_COMPANY-US201205006147

PATIENT
  Sex: Female

DRUGS (3)
  1. HUMALOG [Suspect]
     Dosage: UNK, PRN
     Dates: start: 20020101
  2. LANTUS [Concomitant]
     Dosage: 25 U, UNKNOWN
  3. HUMALOG [Suspect]
     Indication: DIABETES MELLITUS
     Dosage: 10 U, OTHER
     Dates: start: 20020101

REACTIONS (7)
  - DRUG INEFFECTIVE [None]
  - MALAISE [None]
  - CARDIAC FAILURE CONGESTIVE [None]
  - MYOCARDIAL INFARCTION [None]
  - NASOPHARYNGITIS [None]
  - BLOOD GLUCOSE INCREASED [None]
  - INCORRECT DOSE ADMINISTERED [None]
